FAERS Safety Report 4450052-8 (Version None)
Quarter: 2004Q3

REPORT INFORMATION
  Report Type: 
  Country: None (occurrence: None)
  Receive Date: 20040804
  Receipt Date: 20031125
  Transmission Date: 20050211
  Serious: Yes (Disabling)
  Sender: FDA-Public Use
  Company Number: 203545

PATIENT
  Age: 60 Year
  Sex: Female

DRUGS (4)
  1. HERCEPTIN [Suspect]
     Indication: BREAST CANCER
     Dosage: 2 MG/KG, 1/WEEK, INTRAVENOUS
     Route: 042
  2. TOLTERIDONE (TOLTERIDONE TARTRATE) [Concomitant]
  3. CELECOXIB (CELECOXIB) [Concomitant]
  4. TAMOXIFEN CITRATE [Concomitant]

REACTIONS (1)
  - NEUROPATHY PERIPHERAL [None]
